FAERS Safety Report 9361849 (Version 1)
Quarter: 2013Q2

REPORT INFORMATION
  Report Type: Report from Study
  Country: US (occurrence: US)
  Receive Date: 20130621
  Receipt Date: 20130621
  Transmission Date: 20140414
  Serious: Yes (Hospitalization)
  Sender: FDA-Public Use
  Company Number: US-GLAXOSMITHKLINE-A1014803B

PATIENT
  Age: 72 Year
  Sex: Female
  Weight: 66.3 kg

DRUGS (4)
  1. DABRAFENIB [Suspect]
     Indication: COLON CANCER METASTATIC
     Dosage: 150MG TWICE PER DAY
     Route: 048
     Dates: start: 20130222
  2. TRAMETINIB [Suspect]
     Indication: COLON CANCER METASTATIC
     Dosage: 2MG PER DAY
     Route: 048
     Dates: start: 20130222
  3. PREDNISONE [Concomitant]
     Indication: PYREXIA
     Dosage: 10MG PER DAY
     Route: 048
     Dates: start: 20130308, end: 20130314
  4. AUGMENTIN [Concomitant]
     Indication: PYREXIA
     Dosage: 7MG TWICE PER DAY
     Route: 048
     Dates: start: 20130307, end: 20130314

REACTIONS (2)
  - Hypotension [Recovered/Resolved]
  - Pyrexia [Recovered/Resolved]
